FAERS Safety Report 6387072-2 (Version None)
Quarter: 2009Q4

REPORT INFORMATION
  Report Type: 
  Country: None (occurrence: None)
  Receive Date: 20091002
  Receipt Date: 20090928
  Transmission Date: 20100525
  Serious: Yes (Other)
  Sender: FDA-Public Use
  Company Number: JP-AVENTIS-200912401JP

PATIENT
  Age: 52 Year
  Sex: Male

DRUGS (2)
  1. LANTUS [Suspect]
     Dosage: DOSE: 10 UNITS
     Route: 058
     Dates: start: 20090730, end: 20090825
  2. NOVORAPID [Suspect]
     Dosage: DOSE: 8-6-8 UNITS
     Dates: start: 20090730, end: 20090825

REACTIONS (1)
  - HEPATIC FUNCTION ABNORMAL [None]
